FAERS Safety Report 9069288 (Version 2)
Quarter: 2013Q1

REPORT INFORMATION
  Report Type: Spontaneous
  Country: US (occurrence: US)
  Receive Date: 20130215
  Receipt Date: 20130321
  Transmission Date: 20140127
  Serious: No
  Sender: FDA-Public Use
  Company Number: US-PFIZER INC-2013056931

PATIENT
  Age: 62 Year
  Sex: Female
  Weight: 54 kg

DRUGS (6)
  1. LEVOXYL [Suspect]
     Indication: HORMONE REPLACEMENT THERAPY
     Dosage: 88 UG, UNK
     Dates: start: 20121003, end: 20121224
  2. SYNTHROID [Suspect]
     Indication: HORMONE REPLACEMENT THERAPY
     Dosage: 88 UG, UNK
     Dates: start: 20121225
  3. HYDROCHLOROTHIAZIDE [Concomitant]
     Indication: FLUID RETENTION
     Dosage: UNK
  4. PROPRANOLOL [Concomitant]
     Indication: HYPERTENSION
     Dosage: UNK
  5. HUMALOG [Concomitant]
     Indication: TYPE 1 DIABETES MELLITUS
     Dosage: UNK
  6. LANTUS [Concomitant]
     Indication: TYPE 1 DIABETES MELLITUS
     Dosage: UNK

REACTIONS (7)
  - Weight increased [Not Recovered/Not Resolved]
  - Alopecia [Not Recovered/Not Resolved]
  - Temperature intolerance [Recovering/Resolving]
  - Dry skin [Not Recovered/Not Resolved]
  - Muscle spasms [Recovering/Resolving]
  - Onychoclasis [Unknown]
  - Generalised oedema [Unknown]
